FAERS Safety Report 8797931 (Version 1)
Quarter: 2012Q4

REPORT INFORMATION
  Report Type: 
  Country: US (occurrence: US)
  Receive Date: 20120920
  Receipt Date: 20120920
  Transmission Date: 20130627
  Serious: No
  Sender: FDA-Public Use
  Company Number: US-B.I. PHARMACEUTICALS,INC./RIDGEFIELD-2012-BP-22509BP

PATIENT
  Age: 80 None
  Sex: Female

DRUGS (10)
  1. PRADAXA [Suspect]
     Indication: ATRIAL FIBRILLATION
     Dosage: 300 mg
     Route: 048
     Dates: start: 20120302
  2. PRAVASTATIN [Suspect]
     Indication: BLOOD CHOLESTEROL INCREASED
     Dosage: 40 mg
     Route: 048
     Dates: start: 2008, end: 20120904
  3. AMLODIPINE [Concomitant]
     Indication: HYPERTENSION
     Dates: start: 2007
  4. FOSAMAX [Concomitant]
     Indication: OSTEOPENIA
  5. ATENOLOL [Concomitant]
     Indication: HYPERTENSION
     Dates: start: 2007
  6. BENAZEPRIL HCL [Concomitant]
     Dates: start: 2007
  7. KLOR CON [Concomitant]
     Indication: SUPPLEMENTATION THERAPY
     Dates: start: 2009
  8. FUROSEMIDE [Concomitant]
     Dates: start: 2007
  9. LEVOTHYROXINE [Concomitant]
     Indication: HYPOTHYROIDISM
     Dates: start: 2002
  10. TYLENOL [Concomitant]
     Indication: ARTHRITIS
     Dosage: 3900 mg
     Route: 048

REACTIONS (3)
  - Contusion [Not Recovered/Not Resolved]
  - Muscular weakness [Not Recovered/Not Resolved]
  - Rectal discharge [Not Recovered/Not Resolved]
